FAERS Safety Report 6017532-5 (Version None)
Quarter: 2008Q4

REPORT INFORMATION
  Report Type: 
  Country: None (occurrence: None)
  Receive Date: 20081219
  Receipt Date: 20081205
  Transmission Date: 20090506
  Serious: Yes (Hospitalization, Other)
  Sender: FDA-Public Use
  Company Number: 2008S1021889

PATIENT
  Age: 38 Year
  Sex: Female

DRUGS (3)
  1. TEMAZEPAM [Suspect]
     Dosage: 280 MG;X1;ORAL
     Route: 048
  2. PAROXETINE HYDROCHLORIDE [Suspect]
     Dosage: 1.8 GM;X1;ORAL
     Route: 048
  3. DIPHENHYDRAMINE HCL [Suspect]
     Dosage: 400 MG;X1;ORAL
     Route: 048

REACTIONS (18)
  - AGITATION [None]
  - CHILLS [None]
  - CLONUS [None]
  - CONFUSIONAL STATE [None]
  - ELECTROCARDIOGRAM QT PROLONGED [None]
  - FLUSHING [None]
  - GRAND MAL CONVULSION [None]
  - HYPERHIDROSIS [None]
  - HYPERREFLEXIA [None]
  - HYPERTENSION [None]
  - HYPERTONIA [None]
  - MULTIPLE DRUG OVERDOSE [None]
  - MYDRIASIS [None]
  - OBSTRUCTIVE AIRWAYS DISORDER [None]
  - PYREXIA [None]
  - SOMNOLENCE [None]
  - TACHYCARDIA [None]
  - VOMITING [None]
